FAERS Safety Report 16861859 (Version 1)
Quarter: 2019Q3

REPORT INFORMATION
  Report Type: Spontaneous
  Country: DE (occurrence: DE)
  Receive Date: 20190927
  Receipt Date: 20190927
  Transmission Date: 20191005
  Serious: Yes (Hospitalization, Disabling, Other)
  Sender: FDA-Public Use
  Company Number: DE-AUROBINDO-AUR-APL-2019-057186

PATIENT
  Age: 69 Year
  Sex: Female

DRUGS (1)
  1. SIMVASTATIN FILM-COATED TABLET [Suspect]
     Active Substance: SIMVASTATIN
     Indication: PRODUCT USED FOR UNKNOWN INDICATION
     Dosage: 40 MILLIGRAM, DAILY
     Route: 048

REACTIONS (6)
  - Gait inability [Recovered/Resolved]
  - Decreased appetite [Recovered/Resolved]
  - Immune-mediated necrotising myopathy [Recovered/Resolved]
  - Malaise [Unknown]
  - Dysphagia [Recovered/Resolved]
  - Weight decreased [Recovering/Resolving]
